FAERS Safety Report 11419311 (Version 1)
Quarter: 2015Q3

REPORT INFORMATION
  Report Type: Spontaneous
  Country: US (occurrence: None)
  Receive Date: 20150824
  Receipt Date: 20150824
  Transmission Date: 20151125
  Serious: Yes (Disabling)
  Sender: FDA-Public Use
  Company Number: None

PATIENT
  Age: 63 Year
  Sex: Female
  Weight: 60.33 kg

DRUGS (3)
  1. TAMOXIFEN [Concomitant]
     Active Substance: TAMOXIFEN
  2. LEVOTHRYROXIE [Concomitant]
  3. TAMOXIFEN [Suspect]
     Active Substance: TAMOXIFEN
     Indication: BREAST CANCER
     Dosage: 1
     Route: 048
     Dates: start: 20150209, end: 20150821

REACTIONS (4)
  - Irritability [None]
  - Fatigue [None]
  - Vision blurred [None]
  - Blood thyroid stimulating hormone increased [None]
